FAERS Safety Report 4314988-0 (Version None)
Quarter: 2004Q1

REPORT INFORMATION
  Report Type: 
  Country: None (occurrence: None)
  Receive Date: 20040309
  Receipt Date: 20040223
  Transmission Date: 20041129
  Serious: Yes (Other)
  Sender: FDA-Public Use
  Company Number: 2004IM000181

PATIENT
  Age: 54 Year
  Sex: Male

DRUGS (4)
  1. ADVAFERON (A643_INTERFERON ALFACON-1) [Suspect]
     Indication: HEPATITIS C
     Dosage: 18 MU; QOD, SUBCUTANEOUS
     Route: 058
     Dates: start: 20030809, end: 20040114
  2. CIMETIDINE HCL [Concomitant]
  3. URSODEOXYCHOLIC ACID [Concomitant]
  4. GLYCYOL [Concomitant]

REACTIONS (8)
  - ERYTHEMA [None]
  - INJECTION SITE NECROSIS [None]
  - INJECTION SITE PRURITUS [None]
  - OEDEMA PERIPHERAL [None]
  - PALLOR [None]
  - SKIN NECROSIS [None]
  - SKIN ULCER [None]
  - SUBCUTANEOUS HAEMATOMA [None]
